FAERS Safety Report 4680976-8 (Version None)
Quarter: 2005Q2

REPORT INFORMATION
  Report Type: 
  Country: None (occurrence: None)
  Receive Date: 20050601
  Receipt Date: 20050601
  Transmission Date: 20051028
  Serious: Yes (Disabling)
  Sender: FDA-Public Use
  Company Number: None

PATIENT
  Age: 67 Year
  Sex: Male
  Weight: 71.6683 kg

DRUGS (2)
  1. CIALIS [Suspect]
     Indication: ERECTILE DYSFUNCTION
     Dosage: ONE TABLET RANDOM ORAL
     Route: 048
     Dates: start: 20041208, end: 20050526
  2. VIAGRA [Suspect]
     Indication: ERECTILE DYSFUNCTION
     Dosage: ONE TABLET SUSPENDED ORAL
     Route: 048
     Dates: start: 20040401, end: 20041208

REACTIONS (2)
  - CATARACT [None]
  - VISUAL ACUITY REDUCED [None]
